FAERS Safety Report 4615048-1 (Version None)
Quarter: 2005Q1

REPORT INFORMATION
  Report Type: 
  Country: None (occurrence: None)
  Receive Date: 20050322
  Receipt Date: 20050309
  Transmission Date: 20050727
  Serious: Yes (Hospitalization)
  Sender: FDA-Public Use
  Company Number: US-GLAXOSMITHKLINE-A0548947A

PATIENT
  Age: 57 Year
  Sex: Female
  Weight: 97.7 kg

DRUGS (4)
  1. PHAZYME ULTRA STRENGTH SOFTGELS [Suspect]
     Indication: FLATULENCE
     Route: 048
     Dates: start: 20050101
  2. GLUCOPHAGE [Concomitant]
     Indication: DIABETES MELLITUS
  3. AMARYL [Concomitant]
     Indication: DIABETES MELLITUS
  4. HUMULIN N [Concomitant]
     Indication: DIABETES MELLITUS

REACTIONS (5)
  - FATIGUE [None]
  - FEELING ABNORMAL [None]
  - FEELING JITTERY [None]
  - HEART RATE DECREASED [None]
  - TACHYCARDIA [None]
